FAERS Safety Report 10349241 (Version 3)
Quarter: 2015Q1

REPORT INFORMATION
  Report Type: Spontaneous
  Country: DE (occurrence: DE)
  Receive Date: 20140730
  Receipt Date: 20150319
  Transmission Date: 20150720
  Serious: Yes (Other)
  Sender: FDA-Public Use
  Company Number: DE-BIOGENIDEC-2014BI071582

PATIENT
  Age: 46 Year
  Sex: Female

DRUGS (7)
  1. TAVOR [Concomitant]
     Active Substance: LORAZEPAM
  2. TYSABRI [Suspect]
     Active Substance: NATALIZUMAB
     Indication: MULTIPLE SCLEROSIS
     Dates: start: 200708, end: 20140429
  3. GABAPENTIN. [Concomitant]
     Active Substance: GABAPENTIN
     Indication: MULTIPLE SCLEROSIS
  4. PREDNISOLONE. [Concomitant]
     Active Substance: PREDNISOLONE
  5. PREDNISOLONE. [Concomitant]
     Active Substance: PREDNISOLONE
     Dates: start: 20141027, end: 20141031
  6. FRAXIPARIN [Concomitant]
     Active Substance: NADROPARIN CALCIUM
     Route: 058
  7. GABAPENTIN. [Concomitant]
     Active Substance: GABAPENTIN
     Indication: MULTIPLE SCLEROSIS
     Dates: start: 20120515

REACTIONS (6)
  - Urinary tract infection [Unknown]
  - Progressive multifocal leukoencephalopathy [Unknown]
  - Immune reconstitution inflammatory syndrome [Unknown]
  - Pneumonia aspiration [Unknown]
  - Diarrhoea [Unknown]
  - Partial seizures [Unknown]

NARRATIVE: CASE EVENT DATE: 2014
